FAERS Safety Report 18642890 (Version 1)
Quarter: 2020Q4

REPORT INFORMATION
  Report Type: Spontaneous
  Country: US (occurrence: US)
  Receive Date: 20201221
  Receipt Date: 20201221
  Transmission Date: 20210114
  Serious: Yes (Hospitalization)
  Sender: FDA-Public Use
  Company Number: US-BAYER-2020-279820

PATIENT
  Age: 33 Year
  Sex: Female

DRUGS (1)
  1. ASPIRIN (CARDIO) [Suspect]
     Active Substance: ASPIRIN
     Indication: ANTIPHOSPHOLIPID SYNDROME

REACTIONS (5)
  - Premature delivery [None]
  - Maternal exposure during pregnancy [None]
  - Off label use [None]
  - Product use in unapproved indication [None]
  - Contraindicated product administered [None]
